FAERS Safety Report 12494617 (Version 2)
Quarter: 2016Q3

REPORT INFORMATION
  Report Type: Spontaneous
  Country: ES (occurrence: ES)
  Receive Date: 20160624
  Receipt Date: 20160830
  Transmission Date: 20161109
  Serious: Yes (Death, Other)
  Sender: FDA-Public Use
  Company Number: ES-ALEXION PHARMACEUTICALS INC-A201604546

PATIENT
  Age: 61 Year
  Sex: Male

DRUGS (1)
  1. SOLIRIS [Suspect]
     Active Substance: ECULIZUMAB
     Indication: HAEMOLYTIC URAEMIC SYNDROME
     Dosage: 900 MG, QW
     Route: 042
     Dates: start: 20160526, end: 20160613

REACTIONS (8)
  - Respiratory tract infection [Fatal]
  - Basal ganglia haematoma [Fatal]
  - Aspergillus infection [Fatal]
  - Cardiac failure [Fatal]
  - Cerebrovascular accident [Unknown]
  - Septic shock [Fatal]
  - Enterococcal infection [Unknown]
  - Haemolytic uraemic syndrome [Fatal]

NARRATIVE: CASE EVENT DATE: 20160610
